FAERS Safety Report 17323829 (Version 1)
Quarter: 2020Q1

REPORT INFORMATION
  Report Type: Spontaneous
  Country: NO (occurrence: NO)
  Receive Date: 20200127
  Receipt Date: 20200127
  Transmission Date: 20200409
  Serious: Yes (Life-Threatening, Other)
  Sender: FDA-Public Use
  Company Number: NO-009507513-2001NOR007050

PATIENT
  Age: 31 Year
  Sex: Female
  Weight: 120 kg

DRUGS (4)
  1. CYANOCOBALAMIN. [Concomitant]
     Active Substance: CYANOCOBALAMIN
     Dosage: UNK
  2. MAGNESIUM (UNSPECIFIED) [Concomitant]
     Active Substance: MAGNESIUM
     Dosage: UNK
  3. AERIUS (DESLORATADINE) [Suspect]
     Active Substance: DESLORATADINE
     Dosage: UNK
     Dates: start: 20190801, end: 20191201
  4. AERIUS (DESLORATADINE) [Suspect]
     Active Substance: DESLORATADINE
     Indication: SEASONAL ALLERGY
     Dosage: 5 MILLIGRAM, QD, 1-2 TABLETS A DAY, DEPENDS ON THE DAY, FILM COATED TABLET
     Dates: start: 20180801, end: 20181201

REACTIONS (3)
  - Intentional self-injury [Unknown]
  - Suicidal ideation [Recovered/Resolved]
  - Agitated depression [Unknown]

NARRATIVE: CASE EVENT DATE: 20190801
